FAERS Safety Report 17031092 (Version 2)
Quarter: 2019Q4

REPORT INFORMATION
  Report Type: Report from Study
  Country: US (occurrence: US)
  Receive Date: 20191114
  Receipt Date: 20191220
  Transmission Date: 20200122
  Serious: Yes (Life-Threatening, Hospitalization, Other)
  Sender: FDA-Public Use
  Company Number: US-B.I. PHARMACEUTICALS,INC./RIDGEFIELD-2019-MR-000518

PATIENT
  Sex: Male

DRUGS (1)
  1. OFEV [Suspect]
     Active Substance: NINTEDANIB
     Indication: IDIOPATHIC PULMONARY FIBROSIS
     Route: 048
     Dates: start: 20190610

REACTIONS (10)
  - Diarrhoea [Recovered/Resolved with Sequelae]
  - Haematochezia [Unknown]
  - Painful respiration [Not Recovered/Not Resolved]
  - Near death experience [Unknown]
  - Haemoglobin decreased [Unknown]
  - Diarrhoea [Unknown]
  - Abdominal tenderness [Unknown]
  - Abdominal discomfort [Unknown]
  - Haematocrit decreased [Unknown]
  - Chest pain [Recovered/Resolved]
